FAERS Safety Report 11135146 (Version 1)
Quarter: 2015Q2

REPORT INFORMATION
  Report Type: Spontaneous
  Country: GB (occurrence: GB)
  Receive Date: 20150525
  Receipt Date: 20150525
  Transmission Date: 20150821
  Serious: Yes (Hospitalization, Other)
  Sender: FDA-Public Use
  Company Number: GB-TEVA-564813ISR

PATIENT
  Age: 31 Year
  Sex: Male

DRUGS (1)
  1. FILGRASTIM [Suspect]
     Active Substance: FILGRASTIM
     Indication: MEDICATION ERROR
     Route: 058

REACTIONS (9)
  - Muscular weakness [Unknown]
  - Urinary retention [Unknown]
  - Nystagmus [Unknown]
  - Neuromyelitis optica [Recovered/Resolved with Sequelae]
  - Faecal incontinence [Unknown]
  - Acute disseminated encephalomyelitis [Unknown]
  - Dysphagia [Unknown]
  - Medication error [Recovered/Resolved with Sequelae]
  - Visual impairment [Unknown]
